FAERS Safety Report 6109080-9 (Version None)
Quarter: 2009Q1

REPORT INFORMATION
  Report Type: 
  Country: None (occurrence: None)
  Receive Date: 20090310
  Receipt Date: 20090304
  Transmission Date: 20090719
  Serious: Yes (Other)
  Sender: FDA-Public Use
  Company Number: US-ASTRAZENECA-2009UW05893

PATIENT
  Age: 60 Year
  Sex: Female
  Weight: 72.6 kg

DRUGS (7)
  1. NEXIUM [Suspect]
     Indication: GASTROOESOPHAGEAL REFLUX DISEASE
     Route: 048
  2. SEROQUEL [Suspect]
     Indication: BIPOLAR DISORDER
     Route: 048
  3. LYRICA [Concomitant]
  4. LAMICTAL [Concomitant]
  5. SINGULAIR [Concomitant]
  6. HYDROCODONE BITARTRATE + ACETAMINOPHEN [Concomitant]
  7. LORAZEPAM [Concomitant]

REACTIONS (1)
  - LOWER LIMB FRACTURE [None]
